FAERS Safety Report 9365782 (Version 2)
Quarter: 2013Q2

REPORT INFORMATION
  Report Type: Report from Study
  Country: CA (occurrence: CA)
  Receive Date: 20130625
  Receipt Date: 20130628
  Transmission Date: 20140414
  Serious: Yes (Other)
  Sender: FDA-Public Use
  Company Number: CA-JNJFOC-20130614141

PATIENT
  Sex: Female
  Weight: 91.8 kg

DRUGS (4)
  1. REMICADE [Suspect]
     Indication: CROHN^S DISEASE
     Route: 042
  2. REMICADE [Suspect]
     Indication: CROHN^S DISEASE
     Route: 042
     Dates: start: 20130514
  3. IMURAN [Concomitant]
     Route: 065
  4. PREDNISONE [Concomitant]
     Route: 048

REACTIONS (2)
  - Weight increased [Unknown]
  - Abdominal pain [Not Recovered/Not Resolved]
